FAERS Safety Report 4628711-3 (Version None)
Quarter: 2005Q1

REPORT INFORMATION
  Report Type: 
  Country: None (occurrence: None)
  Receive Date: 20050107
  Receipt Date: 20041001
  Transmission Date: 20050727
  Serious: No
  Sender: FDA-Public Use
  Company Number: 235009K04USA

PATIENT
  Sex: Female

DRUGS (1)
  1. REBIF [Suspect]
     Indication: MULTIPLE SCLEROSIS
     Dosage: 44 MCG,
     Dates: start: 20030901, end: 20031001

REACTIONS (7)
  - INFECTION [None]
  - INJECTION SITE INFECTION [None]
  - INJECTION SITE PAIN [None]
  - LOCALISED INFECTION [None]
  - MALAISE [None]
  - PAIN [None]
  - PARESIS [None]
